FAERS Safety Report 8623241-6 (Version None)
Quarter: 2012Q3

REPORT INFORMATION
  Report Type: 
  Country: None (occurrence: None)
  Receive Date: 20120827
  Receipt Date: 20120815
  Transmission Date: 20120928
  Serious: Yes (Hospitalization, Disabling, Other)
  Sender: FDA-Public Use
  Company Number: US-009507513-1205USA04485

PATIENT

DRUGS (4)
  1. FOSAMAX [Suspect]
     Indication: OSTEOPOROSIS
     Dosage: 10 MG, QD
     Route: 048
     Dates: start: 20001117, end: 20011101
  2. ALENDRONATE SODIUM [Suspect]
     Indication: OSTEOPOROSIS
     Dosage: UNK
     Dates: start: 20080303, end: 20110120
  3. FOSAMAX [Suspect]
     Indication: OSTEOPENIA
     Dosage: UNK
     Route: 048
  4. FOSAMAX [Suspect]
     Dosage: 70 MG, QW
     Route: 048
     Dates: start: 20011101

REACTIONS (18)
  - FALL [None]
  - HYPERSENSITIVITY [None]
  - HYPERTENSION [None]
  - ADVERSE EVENT [None]
  - OPEN REDUCTION OF FRACTURE [None]
  - STRESS FRACTURE [None]
  - BLOOD CHOLESTEROL INCREASED [None]
  - ERYTHEMA [None]
  - FEMUR FRACTURE [None]
  - EYE OEDEMA [None]
  - PACKED RED BLOOD CELL TRANSFUSION [None]
  - OSTEOPOROSIS [None]
  - LOW TURNOVER OSTEOPATHY [None]
  - BACK PAIN [None]
  - PAIN [None]
  - HYPERLIPIDAEMIA [None]
  - OSTEOARTHRITIS [None]
  - DERMATITIS CONTACT [None]
